FAERS Safety Report 9081919 (Version 1)
Quarter: 2013Q1

REPORT INFORMATION
  Report Type: Report from Study
  Country: US (occurrence: US)
  Receive Date: 20130130
  Receipt Date: 20130130
  Transmission Date: 20140127
  Serious: No
  Sender: FDA-Public Use
  Company Number: US-ABBOTT-12P-163-0965406-00

PATIENT
  Age: 63 Year
  Sex: Female

DRUGS (14)
  1. HUMIRA 40 MG/0.8 ML PEN [Suspect]
     Indication: PSORIASIS
     Dates: start: 20120409
  2. OMEPRAZOLE [Concomitant]
     Indication: GASTROOESOPHAGEAL REFLUX DISEASE
     Dosage: 20MG DAILY
  3. LEVOTHYROXINE [Concomitant]
     Indication: HYPOTHYROIDISM
     Dosage: 88MCG DAILY
  4. PAROXETINE HCL [Concomitant]
     Indication: ANXIETY
  5. IMIPRAMINE [Concomitant]
     Indication: INSOMNIA
     Dosage: AT BEDTIME
  6. IMIPRAMINE [Concomitant]
     Indication: ANXIETY
  7. FUROSEMIDE [Concomitant]
     Indication: DIURETIC THERAPY
     Dosage: 40MG DAILY
  8. LISINOPRIL [Concomitant]
     Indication: MYOCARDIAL INFARCTION
     Dosage: 5MG DAILY
  9. LISINOPRIL [Concomitant]
     Indication: HYPERTENSION
  10. PLAVIX [Concomitant]
     Indication: MYOCARDIAL INFARCTION
     Dosage: 75MG DAILY
  11. SIMVASTATIN [Concomitant]
     Indication: BLOOD CHOLESTEROL INCREASED
     Dosage: 40MG DAILY AT NIGHT
  12. METOPROLOL [Concomitant]
     Indication: PRODUCT USED FOR UNKNOWN INDICATION
  13. NITROSTAT [Concomitant]
     Indication: CHEST PAIN
  14. BABY ASPIRIN [Concomitant]
     Indication: MYOCARDIAL INFARCTION
     Dosage: 81MG DAILY

REACTIONS (2)
  - Wrong technique in drug usage process [Not Recovered/Not Resolved]
  - Injection site pain [Not Recovered/Not Resolved]
